FAERS Safety Report 5762943-6 (Version None)
Quarter: 2008Q2

REPORT INFORMATION
  Report Type: 
  Country: None (occurrence: None)
  Receive Date: 20080609
  Receipt Date: 20080530
  Transmission Date: 20081010
  Serious: Yes (Hospitalization)
  Sender: FDA-Public Use
  Company Number: US-SANOFI-SYNTHELABO-A03200802109

PATIENT
  Age: 62 Year
  Sex: Female

DRUGS (3)
  1. ELOXATIN [Suspect]
     Indication: PANCREATIC CARCINOMA
     Route: 042
     Dates: start: 20080517, end: 20080517
  2. SENOKOT [Concomitant]
     Indication: CONSTIPATION
     Dosage: UNK
     Route: 065
  3. FLUOROURACIL [Suspect]
     Indication: PANCREATIC CARCINOMA
     Dosage: UNK
     Route: 065
     Dates: start: 20080517, end: 20080517

REACTIONS (3)
  - COLITIS ISCHAEMIC [None]
  - DIARRHOEA [None]
  - INTESTINAL GANGRENE [None]
